FAERS Safety Report 8262608-5 (Version None)
Quarter: 2012Q1

REPORT INFORMATION
  Report Type: 
  Country: None (occurrence: None)
  Receive Date: 20120327
  Receipt Date: 20080516
  Transmission Date: 20120608
  Serious: Yes (Hospitalization)
  Sender: FDA-Public Use
  Company Number: PHEH2008US04667

PATIENT
  Age: 40 Year
  Sex: Male

DRUGS (6)
  1. ACYCLOVIR [Concomitant]
  2. SEPTRA [Concomitant]
  3. PROTONIX [Concomitant]
  4. TACROLIMUS [Concomitant]
  5. ITRACONAZOLE [Concomitant]
  6. GLEEVEC [Suspect]
     Indication: ACUTE LYMPHOCYTIC LEUKAEMIA
     Dosage: 400 MG, QD
     Dates: start: 20050101, end: 20080505

REACTIONS (9)
  - PERICARDIAL EFFUSION [None]
  - ATRIAL FLUTTER [None]
  - DYSPNOEA [None]
  - PERICARDIAL DRAINAGE [None]
  - PLEURAL EFFUSION [None]
  - PERICARDIAL DISEASE [None]
  - HEART RATE INCREASED [None]
  - PERICARDITIS CONSTRICTIVE [None]
  - HYPOTENSION [None]
